FAERS Safety Report 5969995-9 (Version None)
Quarter: 2008Q4

REPORT INFORMATION
  Report Type: 
  Country: None (occurrence: None)
  Receive Date: 20081126
  Receipt Date: 20081121
  Transmission Date: 20090506
  Serious: Yes (Hospitalization)
  Sender: FDA-Public Use
  Company Number: US-GENENTECH-272181

PATIENT
  Age: 33 Year
  Sex: Female

DRUGS (1)
  1. ACTIVASE [Suspect]
     Indication: PULMONARY EMBOLISM
     Dosage: 100 MG, UNK
     Route: 042
     Dates: start: 20081115

REACTIONS (2)
  - AMNESIA [None]
  - HYPOTHERMIA [None]
